FAERS Safety Report 16405545 (Version 2)
Quarter: 2019Q3

REPORT INFORMATION
  Report Type: Report from Study
  Country: US (occurrence: US)
  Receive Date: 20190607
  Receipt Date: 20190822
  Transmission Date: 20191004
  Serious: Yes (Death, Hospitalization, Other)
  Sender: FDA-Public Use
  Company Number: US-BAYER-2019-078714

PATIENT
  Age: 83 Year
  Sex: Male

DRUGS (1)
  1. NEXAVAR [Suspect]
     Active Substance: SORAFENIB
     Indication: HEPATOCELLULAR CARCINOMA
     Dosage: 400 MG, BID
     Route: 048
     Dates: start: 20190315

REACTIONS (12)
  - Fatigue [None]
  - Death [Fatal]
  - Fatigue [Not Recovered/Not Resolved]
  - Asthenia [None]
  - Mobility decreased [Unknown]
  - Red blood cell count decreased [Not Recovered/Not Resolved]
  - Blood test abnormal [Unknown]
  - Peripheral swelling [Recovering/Resolving]
  - Haemorrhage [Unknown]
  - Ulcer haemorrhage [None]
  - White blood cell count decreased [Not Recovered/Not Resolved]
  - Fall [Unknown]

NARRATIVE: CASE EVENT DATE: 2019
